FAERS Safety Report 7732945-9 (Version None)
Quarter: 2011Q3

REPORT INFORMATION
  Report Type: 
  Country: None (occurrence: None)
  Receive Date: 20110907
  Receipt Date: 20110907
  Transmission Date: 20111222
  Serious: Yes (Death)
  Sender: FDA-Public Use
  Company Number: ID-PFIZER INC-2011208768

PATIENT

DRUGS (1)
  1. XANAX [Suspect]
     Dosage: 1 MG, UNK
     Dates: start: 20110906

REACTIONS (1)
  - DEATH [None]
